FAERS Safety Report 20412242 (Version 1)
Quarter: 2022Q1

REPORT INFORMATION
  Report Type: Report from Study
  Country: US (occurrence: US)
  Receive Date: 20220201
  Receipt Date: 20220201
  Transmission Date: 20220424
  Serious: Yes (Hospitalization, Other)
  Sender: FDA-Public Use
  Company Number: US-PCYC-2016PHC06546

PATIENT
  Age: 60 Year
  Sex: Male
  Weight: 113 kg

DRUGS (9)
  1. IBRUTINIB [Suspect]
     Active Substance: IBRUTINIB
     Indication: Mantle cell lymphoma
     Dosage: 560 MG, QD, 28 DAY CYCLES
     Route: 048
     Dates: start: 20160202, end: 20160329
  2. IBRUTINIB [Suspect]
     Active Substance: IBRUTINIB
     Indication: Mantle cell lymphoma refractory
  3. PALBOCICLIB [Concomitant]
     Active Substance: PALBOCICLIB
     Indication: Mantle cell lymphoma
     Dosage: 100 MG, QD, ON DAYS 1-21, 28 DAY CYCLES
     Route: 048
     Dates: start: 20160202, end: 20160323
  4. PALBOCICLIB [Concomitant]
     Active Substance: PALBOCICLIB
     Indication: Mantle cell lymphoma refractory
  5. NORCO [Concomitant]
     Active Substance: ACETAMINOPHEN\HYDROCODONE BITARTRATE
     Indication: Pain
     Dosage: 325MG/5MG, PRN EVERY 6 HRS
     Route: 048
     Dates: start: 20151221, end: 20160411
  6. ONDANSETRON                        /00955302/ [Concomitant]
     Indication: Nausea
     Dosage: UNK
     Dates: start: 20160202
  7. IOHEXOL [Concomitant]
     Active Substance: IOHEXOL
     Indication: Scan with contrast
     Dosage: UNK
     Dates: start: 20160404, end: 20160404
  8. FLUDEOXYGLUCOSE F-18 [Concomitant]
     Active Substance: FLUDEOXYGLUCOSE F-18
     Indication: Scan with contrast
     Dosage: UNK
     Dates: start: 20160404, end: 20160404
  9. MULTIVITAMIN                       /07504101/ [Concomitant]
     Indication: Nutritional supplementation

REACTIONS (4)
  - Alanine aminotransferase increased [Recovered/Resolved]
  - Blood bilirubin increased [Recovered/Resolved]
  - Aspartate aminotransferase increased [Recovered/Resolved]
  - Platelet count decreased [Recovered/Resolved]

NARRATIVE: CASE EVENT DATE: 20160405
